FAERS Safety Report 8384188-6 (Version None)
Quarter: 2012Q1

REPORT INFORMATION
  Report Type: 
  Country: None (occurrence: None)
  Receive Date: 20120323
  Receipt Date: 20110330
  Transmission Date: 20120608
  Serious: Yes (Hospitalization, Other)
  Sender: FDA-Public Use
  Company Number: 163-21880-11030922

PATIENT
  Age: 70 Year
  Sex: Male

DRUGS (9)
  1. LEVEMIR [Concomitant]
  2. NORVASC [Concomitant]
  3. REVLIMID [Suspect]
     Indication: MULTIPLE MYELOMA
     Dosage: 10 MG, DAILY FOR 21 DAYS 7 DAYS OFF, PO
     Route: 048
  4. ACTOS [Concomitant]
  5. ACTONEL [Concomitant]
  6. DEXAMETHASONE [Concomitant]
  7. COUMADIN [Concomitant]
  8. NOVOLOG [Concomitant]
  9. INDUR (ISOSORBIDE MONONITRATE) [Concomitant]

REACTIONS (2)
  - PULMONARY EMBOLISM [None]
  - THROMBOSIS [None]
